FAERS Safety Report 13125941 (Version 3)
Quarter: 2017Q1

REPORT INFORMATION
  Report Type: Spontaneous
  Country: KR (occurrence: KR)
  Receive Date: 20170118
  Receipt Date: 20170317
  Transmission Date: 20170428
  Serious: Yes (Other)
  Sender: FDA-Public Use
  Company Number: KR-009507513-1701KOR006862

PATIENT
  Age: 45 Year
  Sex: Male
  Weight: 72.5 kg

DRUGS (29)
  1. EMEND (FOSAPREPITANT DIMEGLUMINE) [Suspect]
     Active Substance: FOSAPREPITANT DIMEGLUMINE
     Dosage: 150 MG, ONCE
     Route: 042
     Dates: start: 20161010, end: 20161010
  2. FLUOROURACIL. [Concomitant]
     Active Substance: FLUOROURACIL
     Indication: OESOPHAGEAL CARCINOMA
     Dosage: 1930 MG, ONCE
     Route: 042
     Dates: start: 20160428, end: 20160430
  3. ALOXI [Concomitant]
     Active Substance: PALONOSETRON HYDROCHLORIDE
     Indication: NAUSEA
     Dosage: 0.25 MG, ONCE
     Route: 042
     Dates: start: 20160428, end: 20160428
  4. XANAX [Concomitant]
     Active Substance: ALPRAZOLAM
     Indication: PROPHYLAXIS
     Dosage: 0.5 DF, BID
     Route: 048
     Dates: start: 20160427
  5. BESZYME [Concomitant]
     Indication: PROPHYLAXIS
     Dosage: 1 DF, TID
     Dates: start: 20160504
  6. K-CONTIN [Concomitant]
     Indication: PROPHYLAXIS
     Dosage: 2 DF, ONCE
     Route: 048
     Dates: start: 20160526, end: 20160527
  7. FLUOROURACIL. [Concomitant]
     Active Substance: FLUOROURACIL
     Dosage: 1800 MG, ONCE
     Route: 042
     Dates: start: 20160524, end: 20160527
  8. DEXAMETHASONE SODIUM PHOSPHATE. [Concomitant]
     Active Substance: DEXAMETHASONE SODIUM PHOSPHATE
     Dosage: 10 MG, QD
     Route: 042
     Dates: start: 20160524, end: 20160524
  9. SODIUM ALGINATE [Concomitant]
     Active Substance: SODIUM ALGINATE
     Indication: PROPHYLAXIS
     Dosage: 20 ML, BID
     Route: 048
     Dates: start: 20160427
  10. EMEND (FOSAPREPITANT DIMEGLUMINE) [Suspect]
     Active Substance: FOSAPREPITANT DIMEGLUMINE
     Dosage: 150 MG, ONCE
     Route: 042
     Dates: start: 20160524, end: 20160524
  11. CISPLATIN. [Concomitant]
     Active Substance: CISPLATIN
     Indication: OESOPHAGEAL CARCINOMA
     Dosage: 115.8 MG, ONCE
     Route: 042
     Dates: start: 20160428, end: 20160428
  12. DEXAMETHASONE. [Concomitant]
     Active Substance: DEXAMETHASONE
     Indication: PROPHYLAXIS OF NAUSEA AND VOMITING
     Dosage: 3.75 MG, QD
     Route: 048
     Dates: start: 20160429, end: 20160501
  13. ALOXI [Concomitant]
     Active Substance: PALONOSETRON HYDROCHLORIDE
     Dosage: 0.25 MG, ONCE
     Route: 042
     Dates: start: 20160524, end: 20160524
  14. OMP [Concomitant]
     Active Substance: OMEPRAZOLE
     Indication: PROPHYLAXIS
     Dosage: 1 DF, ONCE
     Route: 048
     Dates: start: 20160429
  15. GASMOTIN [Concomitant]
     Active Substance: MOSAPRIDE CITRATE
     Indication: PROPHYLAXIS
     Dosage: 1 DF, TID
     Route: 048
     Dates: start: 20160427
  16. GASMOTIN [Concomitant]
     Active Substance: MOSAPRIDE CITRATE
     Indication: PROPHYLAXIS
  17. ULCERLMIN [Concomitant]
     Active Substance: SUCRALFATE
     Indication: PROPHYLAXIS
     Dosage: 15 ML, TID
     Route: 048
     Dates: start: 20160518, end: 20160524
  18. OMED [Concomitant]
     Indication: PROPHYLAXIS
     Dosage: 1 DF, BID
     Route: 048
     Dates: start: 20160427, end: 20160427
  19. MANNITOL. [Concomitant]
     Active Substance: MANNITOL
     Indication: PROPHYLAXIS
     Dosage: 100 ML, ONCE
     Route: 042
     Dates: start: 20160428, end: 20160428
  20. MANNITOL. [Concomitant]
     Active Substance: MANNITOL
     Dosage: 100 ML, ONCE
     Route: 042
     Dates: start: 20160524, end: 20160524
  21. EMEND (FOSAPREPITANT DIMEGLUMINE) [Suspect]
     Active Substance: FOSAPREPITANT DIMEGLUMINE
     Dosage: 150 MG, ONCE
     Route: 042
     Dates: start: 20161121, end: 20161121
  22. CISPLATIN. [Concomitant]
     Active Substance: CISPLATIN
     Dosage: 108 MG, ONCE
     Route: 042
     Dates: start: 20160524, end: 20160524
  23. DEXAMETHASONE SODIUM PHOSPHATE. [Concomitant]
     Active Substance: DEXAMETHASONE SODIUM PHOSPHATE
     Indication: PROPHYLAXIS OF NAUSEA AND VOMITING
     Dosage: 10 MG, QD
     Route: 042
     Dates: start: 20160428, end: 20160429
  24. LASIX [Concomitant]
     Active Substance: FUROSEMIDE
     Dosage: 20 MG, ONCE
     Route: 042
     Dates: start: 20160524, end: 20160524
  25. EMEND (FOSAPREPITANT DIMEGLUMINE) [Suspect]
     Active Substance: FOSAPREPITANT DIMEGLUMINE
     Indication: PROPHYLAXIS OF NAUSEA AND VOMITING
     Dosage: 150 MG, ONCE
     Route: 042
     Dates: start: 20160428, end: 20160428
  26. EMEND (FOSAPREPITANT DIMEGLUMINE) [Suspect]
     Active Substance: FOSAPREPITANT DIMEGLUMINE
     Dosage: 150 MG, ONCE
     Route: 042
     Dates: start: 20161031, end: 20161031
  27. EMEND (FOSAPREPITANT DIMEGLUMINE) [Suspect]
     Active Substance: FOSAPREPITANT DIMEGLUMINE
     Dosage: 150 MG, ONCE
     Route: 042
     Dates: start: 20161212, end: 20161212
  28. DEXAMETHASONE. [Concomitant]
     Active Substance: DEXAMETHASONE
     Dosage: 3.75 MG, QD
     Route: 048
     Dates: start: 20160525, end: 20160525
  29. LASIX [Concomitant]
     Active Substance: FUROSEMIDE
     Indication: PROPHYLAXIS
     Dosage: 20 MG, ONCE
     Route: 042
     Dates: start: 20160428, end: 20160428

REACTIONS (11)
  - Hypokalaemia [Recovered/Resolved]
  - Abdominal pain upper [Recovered/Resolved]
  - Nausea [Recovered/Resolved]
  - Cough [Recovered/Resolved]
  - Decreased appetite [Recovered/Resolved]
  - Asthenia [Recovered/Resolved]
  - Drug effect incomplete [Unknown]
  - Arrhythmia [Recovering/Resolving]
  - Anaemia [Recovering/Resolving]
  - Palpitations [Recovered/Resolved]
  - Pyrexia [Recovered/Resolved]

NARRATIVE: CASE EVENT DATE: 201605
